FAERS Safety Report 12167966 (Version 2)
Quarter: 2016Q1

REPORT INFORMATION
  Report Type: Spontaneous
  Country: US (occurrence: US)
  Receive Date: 20160310
  Receipt Date: 20160310
  Transmission Date: 20160526
  Serious: Yes (Other)
  Sender: FDA-Public Use
  Company Number: US-ACTAVIS-2016-05390

PATIENT
  Sex: Female

DRUGS (1)
  1. PRAMIPEXOLE (WATSON LABORATORIES) [Suspect]
     Active Substance: PRAMIPEXOLE
     Indication: DEPRESSION
     Dosage: DOSAGES RANGING FROM 0.25 TO 5.0 MG/DAY ONLY AT BEDTIME (HIGH-DOSAGE)
     Route: 065

REACTIONS (2)
  - Hallucination, visual [Recovered/Resolved]
  - Delusion [Recovered/Resolved]
